FAERS Safety Report 8570722-X (Version None)
Quarter: 2012Q3

REPORT INFORMATION
  Report Type: 
  Country: None (occurrence: None)
  Receive Date: 20120805
  Receipt Date: 20120801
  Transmission Date: 20120928
  Serious: Yes (Death, Hospitalization, Other)
  Sender: FDA-Public Use
  Company Number: US-B.I. PHARMACEUTICALS,INC./RIDGEFIELD-2012-BP-17043BP

PATIENT
  Age: 77 Year
  Sex: Female

DRUGS (6)
  1. LASIX [Concomitant]
  2. METOPROLOL TARTRATE [Concomitant]
  3. UNSPECIFIED BLOOD PRESSURE MEDICINES [Concomitant]
     Indication: HYPERTENSION
  4. UNSPECIFIED CHOLESTEROL LOWERING MEDICATIONS [Concomitant]
     Indication: BLOOD CHOLESTEROL INCREASED
  5. PRADAXA [Suspect]
     Indication: ATRIAL FIBRILLATION
     Dosage: 300 MG
     Dates: start: 20120301
  6. NEXIUM [Concomitant]

REACTIONS (2)
  - HAEMORRHAGIC STROKE [None]
  - ATRIAL FIBRILLATION [None]
